FAERS Safety Report 7379300-1 (Version None)
Quarter: 2011Q1

REPORT INFORMATION
  Report Type: 
  Country: None (occurrence: None)
  Receive Date: 20110329
  Receipt Date: 20110318
  Transmission Date: 20110831
  Serious: Yes (Hospitalization)
  Sender: FDA-Public Use
  Company Number: DE-BIOGENIDEC-2010BI040561

PATIENT
  Age: 56 Year
  Sex: Female
  Weight: 75 kg

DRUGS (4)
  1. BELOC ZOK [Concomitant]
     Indication: HYPERTENSION
  2. AVONEX [Suspect]
     Indication: RELAPSING-REMITTING MULTIPLE SCLEROSIS
     Route: 030
     Dates: start: 20091112
  3. DELIX 5 PLUS [Concomitant]
     Indication: HYPERTENSION
  4. INEGY 10/20 [Concomitant]
     Indication: HYPERLIPIDAEMIA

REACTIONS (1)
  - OSTEOARTHRITIS [None]
